FAERS Safety Report 9838561 (Version 2)
Quarter: 2014Q1

REPORT INFORMATION
  Report Type: Spontaneous
  Country: US (occurrence: US)
  Receive Date: 20140123
  Receipt Date: 20140127
  Transmission Date: 20141002
  Serious: Yes (Death)
  Sender: FDA-Public Use
  Company Number: US-PFIZER INC-2014018479

PATIENT
  Age: 34 Year
  Sex: Female

DRUGS (1)
  1. RAPAMUNE [Suspect]
     Indication: ACUTE LEUKAEMIA
     Dosage: 2 MG, UNK
     Dates: start: 20131024

REACTIONS (2)
  - Respiratory failure [Fatal]
  - Off label use [Unknown]
